FAERS Safety Report 8206969-1 (Version None)
Quarter: 2012Q1

REPORT INFORMATION
  Report Type: 
  Country: None (occurrence: None)
  Receive Date: 20120314
  Receipt Date: 20120302
  Transmission Date: 20120608
  Serious: Yes (Hospitalization)
  Sender: FDA-Public Use
  Company Number: US-ELI_LILLY_AND_COMPANY-US201201005191

PATIENT
  Sex: Female

DRUGS (4)
  1. FORTEO [Suspect]
     Indication: OSTEOPOROSIS
     Dosage: 20 UG, QD
     Route: 065
     Dates: start: 20120101
  2. COUMADIN [Concomitant]
  3. IBUPROFEN (ADVIL) [Concomitant]
  4. NAPROXEN (ALEVE) [Concomitant]

REACTIONS (10)
  - OEDEMA PERIPHERAL [None]
  - THROMBOSIS [None]
  - DYSSTASIA [None]
  - INJECTION SITE PAIN [None]
  - INCORRECT ROUTE OF DRUG ADMINISTRATION [None]
  - DEPRESSION [None]
  - MULTIPLE SCLEROSIS [None]
  - PAIN [None]
  - PSYCHOTIC DISORDER [None]
  - ASTHENIA [None]
